FAERS Safety Report 6161765-4 (Version None)
Quarter: 2009Q2

REPORT INFORMATION
  Report Type: 
  Country: None (occurrence: None)
  Receive Date: 20090417
  Receipt Date: 20090417
  Transmission Date: 20091009
  Serious: No
  Sender: FDA-Public Use
  Company Number: None

PATIENT
  Age: 79 Year
  Sex: Female

DRUGS (1)
  1. LANOXIN [Suspect]
     Indication: ATRIAL FIBRILLATION
     Dosage: 1 DAILY PO
     Route: 048

REACTIONS (2)
  - DECREASED APPETITE [None]
  - SOMNOLENCE [None]
